FAERS Safety Report 7013710-7 (Version None)
Quarter: 2010Q3

REPORT INFORMATION
  Report Type: 
  Country: None (occurrence: None)
  Receive Date: 20100924
  Receipt Date: 20100920
  Transmission Date: 20110219
  Serious: Yes (Hospitalization, Other)
  Sender: FDA-Public Use
  Company Number: US-TEVA-249190USA

PATIENT
  Age: 78 Year
  Sex: Female

DRUGS (2)
  1. LIDOCAINE HYDROCHLORIDE 2% JELLY [Suspect]
     Indication: LOCAL ANAESTHESIA
  2. BENZOCAINE [Suspect]
     Indication: ANAESTHESIA
     Route: 061

REACTIONS (1)
  - METHAEMOGLOBINAEMIA [None]
